FAERS Safety Report 7542088 (Version 3)
Quarter: 2012Q4

REPORT INFORMATION
  Report Type: 
  Country: NL (occurrence: None)
  Receive Date: 20100804
  Receipt Date: 20120926
  Transmission Date: 20130627
  Serious: Yes (Death, Hospitalization, Other)
  Sender: FDA-Public Use
  Company Number: 2010AP001537

PATIENT
  Age: 9 Year
  Sex: Male

DRUGS (9)
  1. PREDNISONE [Suspect]
     Indication: IMMUNOSUPPRESSANT DRUG THERAPY
     Dosage: 0.3 MG/KG; QD
  2. PREDNISONE [Suspect]
     Indication: PROPHYLAXIS AGAINST TRANSPLANT REJECTION
     Dosage: 0.3 MG/KG; QD
  3. MYCOPHENOLATE MOFETIL [Suspect]
     Indication: IMMUNOSUPPRESSANT DRUG THERAPY
  4. TACROLIMUS [Suspect]
     Indication: IMMUNOSUPPRESSANT DRUG THERAPY
  5. BASILIXIMAB [Suspect]
     Indication: IMMUNOSUPPRESSANT DRUG THERAPY
  6. FLUDARABINE PHOSPHATE [Suspect]
     Indication: IMMUNOSUPPRESSANT DRUG THERAPY
     Dosage: 5 MG/M**2
  7. TREOSULFAN [Suspect]
     Indication: IMMUNOSUPPRESSANT DRUG THERAPY
     Dosage: 14 BQ
  8. CYCLOPHOSPHAMIDE [Suspect]
     Indication: IMMUNOSUPPRESSANT DRUG THERAPY
     Dosage: 50 MG/KG
  9. ANTI-THYMOCYTE GLOBULIN (RABBIT) NOS [Concomitant]

REACTIONS (29)
  - Lymphopenia [None]
  - Porphyria non-acute [None]
  - Gastrointestinal infection [None]
  - Ear infection bacterial [None]
  - Herpes zoster [None]
  - Staphylococcal skin infection [None]
  - Staphylococcal scalded skin syndrome [None]
  - Gastroenteritis viral [None]
  - Optic neuritis [None]
  - Retinitis [None]
  - Multi-organ failure [None]
  - Hepatic enzyme increased [None]
  - Disease recurrence [None]
  - Endoscopic retrograde cholangiopancreatography abnormal [None]
  - Bile duct stenosis [None]
  - Biliary ischaemia [None]
  - Anaphylactic shock [None]
  - Renal failure [None]
  - Hypertension [None]
  - Gamma-glutamyltransferase increased [None]
  - Blood bilirubin increased [None]
  - Respiratory failure [None]
  - Varicella virus test positive [None]
  - Cholestasis [None]
  - Toxicity to various agents [None]
  - Dehydration [None]
  - Vanishing bile duct syndrome [None]
  - Stem cell transplant [None]
  - Porphyria non-acute [None]
